FAERS Safety Report 10820375 (Version 1)
Quarter: 2015Q1

REPORT INFORMATION
  Report Type: Report from Study
  Country: US (occurrence: None)
  Receive Date: 20150213
  Receipt Date: 20150213
  Transmission Date: 20150721
  Serious: Yes (Hospitalization)
  Sender: FDA-Public Use
  Company Number: 2012BI022587

PATIENT
  Age: 50 Year
  Sex: Female

DRUGS (1)
  1. AVONEX [Suspect]
     Active Substance: INTERFERON BETA-1A
     Indication: MULTIPLE SCLEROSIS
     Route: 030
     Dates: start: 20100223

REACTIONS (4)
  - Epistaxis [None]
  - Nasopharyngitis [None]
  - Cerebrovascular accident [None]
  - Injection site bruising [None]

NARRATIVE: CASE EVENT DATE: 20120611
